FAERS Safety Report 9857987 (Version 2)
Quarter: 2014Q1

REPORT INFORMATION
  Report Type: Report from Study
  Country: BR (occurrence: BR)
  Receive Date: 20140131
  Receipt Date: 20140306
  Transmission Date: 20141002
  Serious: No
  Sender: FDA-Public Use
  Company Number: BR-ROCHE-1342308

PATIENT
  Sex: Female
  Weight: 75 kg

DRUGS (4)
  1. ACTEMRA [Suspect]
     Indication: RHEUMATOID ARTHRITIS
     Dosage: DATE OF MOST RECENT INFUSION: 14/JAN/2014
     Route: 042
  2. OMEPRAZOLE [Concomitant]
  3. METICORTEN [Concomitant]
  4. ARAVA [Concomitant]

REACTIONS (5)
  - Weight increased [Recovered/Resolved]
  - Posture abnormal [Not Recovered/Not Resolved]
  - Gait disturbance [Not Recovered/Not Resolved]
  - Pain [Not Recovered/Not Resolved]
  - Knee deformity [Not Recovered/Not Resolved]
